FAERS Safety Report 9724922 (Version 1)
Quarter: 2013Q4

REPORT INFORMATION
  Report Type: Spontaneous
  Country: US (occurrence: US)
  Receive Date: 20131202
  Receipt Date: 20131202
  Transmission Date: 20140711
  Serious: No
  Sender: FDA-Public Use
  Company Number: US-ENDO PHARMACEUTICALS INC.-OXYC20120068

PATIENT
  Sex: Male
  Weight: 72.64 kg

DRUGS (1)
  1. OXYCODONE HCL [Suspect]
     Indication: ARTHRITIS
     Dosage: 30 MG
     Route: 048

REACTIONS (2)
  - Abdominal pain upper [Not Recovered/Not Resolved]
  - Nausea [Not Recovered/Not Resolved]
